FAERS Safety Report 7812109-0 (Version None)
Quarter: 2011Q4

REPORT INFORMATION
  Report Type: 
  Country: None (occurrence: None)
  Receive Date: 20111013
  Receipt Date: 20111007
  Transmission Date: 20120403
  Serious: Yes (Life-Threatening, Hospitalization)
  Sender: FDA-Public Use
  Company Number: GXBR2011US04841

PATIENT
  Sex: Male
  Weight: 72.562 kg

DRUGS (12)
  1. DILTIAZEM HCL [Concomitant]
     Indication: HYPERTENSION
     Dosage: UNK MG, UNK
  2. FISH OIL [Concomitant]
     Indication: VITAMIN SUPPLEMENTATION
     Dosage: UNK DF, QD
  3. AMIODARONE HCL [Concomitant]
     Indication: ATRIAL FIBRILLATION
     Dosage: UNK MG, BID
     Dates: start: 20110901
  4. NIACIN [Concomitant]
     Indication: VITAMIN SUPPLEMENTATION
     Dosage: 500 MG, TID
  5. ENOXAPARIN SODIUM [Suspect]
     Indication: THROMBOPHLEBITIS
     Dosage: 80 MG, BID
     Route: 058
     Dates: start: 20110919, end: 20111002
  6. CARAFATE [Concomitant]
     Indication: GASTROINTESTINAL ULCER
     Dosage: UNK DF, QID
  7. GLEEVEC [Concomitant]
     Indication: CHRONIC MYELOID LEUKAEMIA
     Dosage: 300 MG, QD
     Dates: start: 20080701
  8. CEPHALEXIN [Concomitant]
     Indication: THROMBOPHLEBITIS
     Dosage: 250 MG, QID
     Dates: start: 20110901
  9. PROTONIX [Concomitant]
     Indication: GASTROINTESTINAL ULCER
     Dosage: UNK MG, BID
     Dates: start: 20110901
  10. MULTI-VITAMINS [Concomitant]
     Indication: VITAMIN SUPPLEMENTATION
     Dosage: UNK DF, UNK
  11. ALLOPURINOL [Concomitant]
     Indication: GOUT
     Dosage: UNK MG, QD
  12. FERROUS SULFATE TAB [Concomitant]
     Indication: MINERAL SUPPLEMENTATION
     Dosage: 325 MG, TID

REACTIONS (6)
  - CONVULSION [None]
  - WEIGHT BEARING DIFFICULTY [None]
  - PULMONARY OEDEMA [None]
  - RETROPERITONEAL HAEMORRHAGE [None]
  - HYPOAESTHESIA [None]
  - GROIN PAIN [None]
